FAERS Safety Report 8355731 (Version 3)
Quarter: 2013Q3

REPORT INFORMATION
  Report Type: Report from Study
  Country: DE (occurrence: DE)
  Receive Date: 20120126
  Receipt Date: 20130903
  Transmission Date: 20140515
  Serious: Yes (Hospitalization)
  Sender: FDA-Public Use
  Company Number: DE-ABBOTT-11P-062-0872998-00

PATIENT
  Age: 68 Year
  Sex: Male
  Weight: 106 kg

DRUGS (6)
  1. HUMIRA 40 MG/ 0.8 ML PRE-FILLED SYRINGE [Suspect]
     Indication: PSORIASIS
     Route: 058
     Dates: start: 20100302, end: 20111014
  2. METFORMIN [Concomitant]
     Indication: DIABETES MELLITUS
     Route: 048
  3. NEBIVOLOL [Concomitant]
     Indication: HYPERTENSION
     Route: 048
  4. HYDROCHLOROTHIAZIDE W/RAMIPRIL [Concomitant]
     Indication: HYPERTENSION
     Dosage: 5 MG/25 MG
     Route: 048
  5. ASA [Concomitant]
     Indication: PRODUCT USED FOR UNKNOWN INDICATION
     Route: 048
  6. MAGNESIUM [Concomitant]
     Indication: PRODUCT USED FOR UNKNOWN INDICATION
     Route: 048

REACTIONS (5)
  - Hypokinesia [Recovered/Resolved]
  - Staphylococcal infection [Recovered/Resolved]
  - Encephalitis [Recovered/Resolved]
  - Aphasia [Recovered/Resolved]
  - Activities of daily living impaired [Recovered/Resolved]
